FAERS Safety Report 9592819 (Version 2)
Quarter: 2013Q4

REPORT INFORMATION
  Report Type: Spontaneous
  Country: US (occurrence: US)
  Receive Date: 20131004
  Receipt Date: 20131010
  Transmission Date: 20140711
  Serious: Yes (Death, Hospitalization)
  Sender: FDA-Public Use
  Company Number: US-JNJFOC-20131001817

PATIENT
  Sex: Female

DRUGS (5)
  1. XARELTO [Suspect]
     Indication: DEEP VEIN THROMBOSIS
     Route: 048
     Dates: start: 201309, end: 2013
  2. HEPARIN [Suspect]
     Indication: PULMONARY EMBOLISM
     Route: 065
     Dates: start: 2013, end: 2013
  3. HEPARIN [Suspect]
     Indication: DEEP VEIN THROMBOSIS
     Route: 065
     Dates: start: 2013, end: 2013
  4. COUMADIN [Suspect]
     Indication: PULMONARY EMBOLISM
     Route: 065
     Dates: start: 2013
  5. COUMADIN [Suspect]
     Indication: DEEP VEIN THROMBOSIS
     Route: 065
     Dates: start: 2013

REACTIONS (3)
  - Death [Fatal]
  - Haemorrhage [Unknown]
  - Pulmonary embolism [Unknown]
